FAERS Safety Report 24669839 (Version 1)
Quarter: 2024Q4

REPORT INFORMATION
  Report Type: Spontaneous
  Country: US (occurrence: US)
  Receive Date: 20241127
  Receipt Date: 20241127
  Transmission Date: 20250115
  Serious: Yes (Other)
  Sender: PFIZER
  Company Number: US-PFIZER INC-202400306455

PATIENT
  Sex: Female

DRUGS (4)
  1. SKELAXIN [Suspect]
     Active Substance: METAXALONE
     Indication: Fibromyalgia
     Dosage: UNK
  2. SKELAXIN [Suspect]
     Active Substance: METAXALONE
     Indication: Thyroid disorder
  3. SKELAXIN [Suspect]
     Active Substance: METAXALONE
     Indication: Myalgia
  4. SKELAXIN [Suspect]
     Active Substance: METAXALONE
     Indication: Pain

REACTIONS (11)
  - Suture insertion [Not Recovered/Not Resolved]
  - Rash [Unknown]
  - Off label use [Unknown]
  - Drug ineffective for unapproved indication [Unknown]
  - Pruritus [Unknown]
  - Hypersensitivity [Unknown]
  - Urticaria [Unknown]
  - Skin lesion [Unknown]
  - Scar [Unknown]
  - Skin disorder [Unknown]
  - Pain [Not Recovered/Not Resolved]
